FAERS Safety Report 15474772 (Version 1)
Quarter: 2018Q4

REPORT INFORMATION
  Report Type: Spontaneous
  Country: TR (occurrence: TR)
  Receive Date: 20181008
  Receipt Date: 20181008
  Transmission Date: 20190205
  Serious: Yes (Other)
  Sender: FDA-Public Use
  Company Number: TR-PROVELL PHARMACEUTICALS-2055792

PATIENT
  Sex: Female

DRUGS (7)
  1. EUTHYROX [Suspect]
     Active Substance: LEVOTHYROXINE SODIUM
  2. EUTHYROX [Suspect]
     Active Substance: LEVOTHYROXINE SODIUM
  3. EUTHYROX [Suspect]
     Active Substance: LEVOTHYROXINE SODIUM
     Indication: AUTOIMMUNE THYROIDITIS
  4. LEVOTIRON [Suspect]
     Active Substance: LEVOTHYROXINE SODIUM
  5. VITAMIN D [Suspect]
     Active Substance: CHOLECALCIFEROL
  6. LEVOTIRON [Suspect]
     Active Substance: LEVOTHYROXINE SODIUM
  7. LEVOTIRON [Suspect]
     Active Substance: LEVOTHYROXINE SODIUM

REACTIONS (8)
  - Nephrolithiasis [None]
  - Blood calcium [None]
  - Fatigue [None]
  - Anxiety [None]
  - Anger [None]
  - Somnolence [None]
  - Panic disorder [None]
  - Dysstasia [None]
